FAERS Safety Report 4276035-9 (Version None)
Quarter: 2004Q1

REPORT INFORMATION
  Report Type: 
  Country: None (occurrence: None)
  Receive Date: 20040121
  Receipt Date: 20030702
  Transmission Date: 20041129
  Serious: No
  Sender: FDA-Public Use
  Company Number: US-GLAXOSMITHKLINE-A0415229A

PATIENT
  Age: 64 Year
  Sex: Male

DRUGS (2)
  1. VALTREX [Suspect]
     Indication: HERPES ZOSTER
     Dosage: 1000MG SINGLE DOSE
     Route: 048
  2. HEMODIALYSIS [Concomitant]

REACTIONS (1)
  - HALLUCINATION [None]
